FAERS Safety Report 4778609-5 (Version None)
Quarter: 2005Q3

REPORT INFORMATION
  Report Type: 
  Country: None (occurrence: None)
  Receive Date: 20050923
  Receipt Date: 20050907
  Transmission Date: 20060218
  Serious: Yes (Hospitalization)
  Sender: FDA-Public Use
  Company Number: DSA_27084_2005

PATIENT
  Age: 74 Year
  Sex: Female

DRUGS (2)
  1. ENALAPRIL [Suspect]
     Dosage: DF
  2. HEPARIN [Concomitant]

REACTIONS (4)
  - BLOOD CALCIUM INCREASED [None]
  - BLOOD PRESSURE DECREASED [None]
  - ISCHAEMIA [None]
  - PANCREATITIS ACUTE [None]
